FAERS Safety Report 6506179-X (Version None)
Quarter: 2009Q4

REPORT INFORMATION
  Report Type: 
  Country: None (occurrence: None)
  Receive Date: 20091218
  Receipt Date: 20091216
  Transmission Date: 20100525
  Serious: Yes (Other)
  Sender: FDA-Public Use
  Company Number: BR-BAXTER-2009BH003971

PATIENT

DRUGS (1)
  1. DEXTROSE 5% AND SODIUM CHLORIDE 0.9% IN PLASTIC CONTAINER [Suspect]
     Indication: DRUG USE FOR UNKNOWN INDICATION
     Route: 042

REACTIONS (3)
  - BACTERAEMIA [None]
  - CYANOSIS [None]
  - TREMOR [None]
